FAERS Safety Report 8172728-1 (Version None)
Quarter: 2012Q1

REPORT INFORMATION
  Report Type: 
  Country: None (occurrence: None)
  Receive Date: 20120229
  Receipt Date: 20120221
  Transmission Date: 20120608
  Serious: Yes (Hospitalization)
  Sender: FDA-Public Use
  Company Number: US-US-EMD SERONO, INC.-7109508

PATIENT
  Sex: Female
  Weight: 64 kg

DRUGS (4)
  1. REBIF [Suspect]
     Indication: MULTIPLE SCLEROSIS
     Route: 058
     Dates: start: 20081029, end: 20110101
  2. OTHER UNSPECIFIED MEDICATIONS [Concomitant]
  3. REBIF [Suspect]
     Route: 058
     Dates: start: 20110101
  4. INSULIN PUMP [Concomitant]

REACTIONS (6)
  - PNEUMONIA [None]
  - ACUTE RESPIRATORY DISTRESS SYNDROME [None]
  - PHARYNGITIS STREPTOCOCCAL [None]
  - BREAST CANCER [None]
  - PANCYTOPENIA [None]
  - HEPATIC ENZYME INCREASED [None]
